FAERS Safety Report 12786916 (Version 2)
Quarter: 2016Q4

REPORT INFORMATION
  Report Type: Report from Study
  Country: CA (occurrence: CA)
  Receive Date: 20160928
  Receipt Date: 20161115
  Transmission Date: 20170207
  Serious: Yes (Disabling)
  Sender: FDA-Public Use
  Company Number: CA-HLSUS-2016-CA-000389

PATIENT
  Age: 47 Year
  Sex: Female

DRUGS (1)
  1. CLOZARIL [Suspect]
     Active Substance: CLOZAPINE
     Indication: SCHIZOPHRENIA
     Dosage: 25 MG DAILY
     Route: 048
     Dates: start: 20151027

REACTIONS (2)
  - Acute psychosis [Not Recovered/Not Resolved]
  - Treatment noncompliance [Recovered/Resolved with Sequelae]
